FAERS Safety Report 7490099-0 (Version None)
Quarter: 2011Q2

REPORT INFORMATION
  Report Type: 
  Country: None (occurrence: None)
  Receive Date: 20110519
  Receipt Date: 20110517
  Transmission Date: 20111010
  Serious: No
  Sender: FDA-Public Use
  Company Number: US-PFIZER INC-2011105993

PATIENT
  Sex: Female
  Weight: 54.422 kg

DRUGS (1)
  1. ADVIL LIQUI-GELS [Suspect]
     Indication: ARTHRITIS
     Dosage: 200 MG, UNK
     Dates: start: 20110510

REACTIONS (1)
  - DRUG INEFFECTIVE [None]
